FAERS Safety Report 9721400 (Version 2)
Quarter: 2014Q1

REPORT INFORMATION
  Report Type: Spontaneous
  Country: US (occurrence: US)
  Receive Date: 20131129
  Receipt Date: 20140114
  Transmission Date: 20141002
  Serious: Yes (Other)
  Sender: FDA-Public Use
  Company Number: US-ELI_LILLY_AND_COMPANY-US201311007901

PATIENT
  Age: 69 Year
  Sex: Female

DRUGS (3)
  1. HUMULIN NPH [Suspect]
     Indication: TYPE 2 DIABETES MELLITUS
     Dosage: 25 U, EACH MORNING
     Route: 065
     Dates: start: 201305
  2. HUMULIN NPH [Suspect]
     Dosage: 35 U, EACH EVENING
     Route: 065
     Dates: start: 201305
  3. BAYER ASPIRIN [Concomitant]
     Dosage: 81 MG, UNK

REACTIONS (5)
  - Neoplasm malignant [Unknown]
  - Injection site pain [Unknown]
  - Injection site rash [Unknown]
  - Injection site erythema [Unknown]
  - Injection site urticaria [Unknown]
